FAERS Safety Report 10234245 (Version 2)
Quarter: 2014Q2

REPORT INFORMATION
  Report Type: Spontaneous
  Country: US (occurrence: US)
  Receive Date: 20140612
  Receipt Date: 20140612
  Transmission Date: 20141212
  Serious: No
  Sender: FDA-Public Use
  Company Number: US-MALLINCKRODT-T201304672

PATIENT
  Age: 64 Year
  Sex: Male
  Weight: 164.63 kg

DRUGS (17)
  1. ULTRATAG RBC [Suspect]
     Indication: MULTIPLE GATED ACQUISITION SCAN
     Dosage: UNK, SINGLE
     Route: 042
     Dates: start: 20131022, end: 20131022
  2. TECHNETIUM TC 99M [Suspect]
     Indication: MULTIPLE GATED ACQUISITION SCAN
     Dosage: 27.4 MCI, SINGLE
     Route: 042
     Dates: start: 20131022, end: 20131022
  3. SEPTRA DS [Suspect]
     Indication: SINUSITIS
     Dosage: 800/120 MG
     Route: 065
     Dates: start: 20131022
  4. HEPARIN                            /00027704/ [Suspect]
     Indication: PRODUCT USED FOR UNKNOWN INDICATION
     Dosage: UNK, SINGLE
     Route: 042
     Dates: start: 20131022, end: 20131022
  5. BUMEX [Concomitant]
     Dosage: UNK
  6. COREG [Concomitant]
     Dosage: UNK
  7. CRESTOR [Concomitant]
     Dosage: UNK
  8. IMDUR [Concomitant]
     Dosage: UNK
  9. LANOXIN [Concomitant]
     Dosage: UNK
  10. ATIVAN [Concomitant]
     Dosage: UNK
  11. PRINIVIL [Concomitant]
     Dosage: UNK
  12. ASPIRIN [Concomitant]
     Dosage: UNK
  13. PLAVIX [Concomitant]
     Dosage: UNK
  14. ZYRTEC [Concomitant]
     Dosage: UNK
  15. MIRALAX                            /00754501/ [Concomitant]
     Dosage: UNK
  16. HYDRALAZINE [Concomitant]
     Dosage: UNK
  17. PERCOCET                           /00446701/ [Concomitant]
     Dosage: UNK

REACTIONS (1)
  - Urticaria [Unknown]
